FAERS Safety Report 6574732-3 (Version None)
Quarter: 2010Q1

REPORT INFORMATION
  Report Type: 
  Country: None (occurrence: None)
  Receive Date: 20100209
  Receipt Date: 20100127
  Transmission Date: 20100710
  Serious: Yes (Hospitalization, Other)
  Sender: FDA-Public Use
  Company Number: PHEH2009US11312

PATIENT
  Sex: Female

DRUGS (8)
  1. EXJADE [Suspect]
     Indication: SICKLE CELL ANAEMIA
     Dosage: 1250 MG, QD
     Route: 048
     Dates: start: 20090830
  2. EXJADE [Suspect]
     Indication: IRON OVERLOAD
     Dosage: ^LOWER DOSE^ / SLOW TAPER
     Route: 048
     Dates: start: 20090908
  3. OMEPRAZOLE [Concomitant]
  4. TAMIFLU [Concomitant]
  5. RESTORIL [Concomitant]
  6. LEXAPRO [Concomitant]
  7. PERCOCET [Concomitant]
  8. OXYCONTIN [Concomitant]

REACTIONS (17)
  - ANAEMIA [None]
  - ARTHRALGIA [None]
  - ASTHENIA [None]
  - BODY TEMPERATURE INCREASED [None]
  - DEHYDRATION [None]
  - DIARRHOEA [None]
  - DYSPNOEA [None]
  - FEELING ABNORMAL [None]
  - MALAISE [None]
  - MEAN PLATELET VOLUME INCREASED [None]
  - MYALGIA [None]
  - NAUSEA [None]
  - PAIN [None]
  - SICKLE CELL ANAEMIA WITH CRISIS [None]
  - VIRAL INFECTION [None]
  - VOMITING [None]
  - WHITE BLOOD CELL COUNT INCREASED [None]
